FAERS Safety Report 13126930 (Version 1)
Quarter: 2017Q1

REPORT INFORMATION
  Report Type: Spontaneous
  Country: US (occurrence: US)
  Receive Date: 20170118
  Receipt Date: 20170118
  Transmission Date: 20170428
  Serious: No
  Sender: FDA-Public Use
  Company Number: US-ROCHE-1803322

PATIENT
  Sex: Male

DRUGS (2)
  1. RITUXAN [Suspect]
     Active Substance: RITUXIMAB
     Indication: PRODUCT USED FOR UNKNOWN INDICATION
     Route: 065
  2. FLOMAX [Concomitant]
     Active Substance: TAMSULOSIN HYDROCHLORIDE

REACTIONS (17)
  - Sexual dysfunction [Unknown]
  - Pollakiuria [Unknown]
  - Asthenia [Unknown]
  - Muscle spasticity [Unknown]
  - Temperature intolerance [Unknown]
  - Paraesthesia [Unknown]
  - Ill-defined disorder [Unknown]
  - Depression [Unknown]
  - Neuralgia [Unknown]
  - Cognitive disorder [Unknown]
  - Anxiety [Unknown]
  - Functional gastrointestinal disorder [Unknown]
  - Bladder dysfunction [Unknown]
  - Dysuria [Unknown]
  - Stress [Unknown]
  - Vitamin D deficiency [Unknown]
  - Muscle fatigue [Unknown]
